FAERS Safety Report 4705753-0 (Version None)
Quarter: 2005Q2

REPORT INFORMATION
  Report Type: 
  Country: None (occurrence: None)
  Receive Date: 20050629
  Receipt Date: 20050624
  Transmission Date: 20051028
  Serious: Yes (Other)
  Sender: FDA-Public Use
  Company Number: TR-2004-033537

PATIENT
  Age: 32 Year
  Sex: Female
  Weight: 64 kg

DRUGS (1)
  1. YASMIN [Suspect]
     Indication: OLIGOMENORRHOEA
     Dosage: 1 TAB(S).21D/28D, ORAL
     Route: 048
     Dates: start: 20040401, end: 20040827

REACTIONS (2)
  - DIABETES INSIPIDUS [None]
  - HYPOGLYCAEMIA [None]
